FAERS Safety Report 8172735-9 (Version None)
Quarter: 2012Q1

REPORT INFORMATION
  Report Type: 
  Country: None (occurrence: None)
  Receive Date: 20120229
  Receipt Date: 20120223
  Transmission Date: 20120608
  Serious: Yes (Other)
  Sender: FDA-Public Use
  Company Number: US-AMGEN-USASP2012002402

PATIENT
  Sex: Male

DRUGS (1)
  1. ENBREL [Suspect]
     Indication: PSORIATIC ARTHROPATHY
     Dosage: 50 MG, QWK
     Dates: start: 20090101

REACTIONS (16)
  - DYSPNOEA [None]
  - NAUSEA [None]
  - ABDOMINAL PAIN [None]
  - ANXIETY [None]
  - CONSTIPATION [None]
  - PALPITATIONS [None]
  - DIARRHOEA [None]
  - LYMPHADENOPATHY [None]
  - HEADACHE [None]
  - INJECTION SITE ERYTHEMA [None]
  - PYREXIA [None]
  - RASH [None]
  - CHEST PAIN [None]
  - FLUSHING [None]
  - CHILLS [None]
  - VOMITING [None]
